FAERS Safety Report 9522947 (Version 2)
Quarter: 2013Q4

REPORT INFORMATION
  Report Type: Spontaneous
  Country: US (occurrence: US)
  Receive Date: 20130913
  Receipt Date: 20131003
  Transmission Date: 20140711
  Serious: Yes (Hospitalization, Other)
  Sender: FDA-Public Use
  Company Number: US-ASTRAZENECA-2013SE67621

PATIENT
  Age: 73 Year
  Sex: Male
  Weight: 78.9 kg

DRUGS (14)
  1. ATENOLOL [Suspect]
     Indication: MYOCARDIAL INFARCTION
     Route: 048
     Dates: start: 200412
  2. CRESTOR [Suspect]
     Indication: CARDIOVASCULAR EVENT PROPHYLAXIS
     Route: 048
  3. VALIUM [Suspect]
     Indication: OBSESSIVE-COMPULSIVE DISORDER
     Route: 048
  4. HYDROCODONE [Suspect]
     Indication: PAIN
     Dosage: 10 325MG TID
     Route: 048
  5. XANAX [Concomitant]
     Dosage: PRN
     Route: 048
  6. COLACE [Concomitant]
     Indication: GASTROINTESTINAL DISORDER
     Dosage: PRN
     Route: 048
  7. ALLOPURINOL [Concomitant]
     Indication: RENAL LITHIASIS PROPHYLAXIS
     Route: 048
  8. RAMIPRIL [Concomitant]
     Indication: BLOOD PRESSURE ABNORMAL
     Route: 048
  9. ECOTRIN [Concomitant]
     Dosage: DAILY
     Route: 048
  10. CYMBALTA [Concomitant]
     Route: 048
  11. GABAPENTIN [Concomitant]
     Route: 048
  12. NEURONTIN [Concomitant]
  13. SUPPLEMENTS OF POTASSIUM AND MAGNESIUM [Concomitant]
  14. MELOXICAM [Concomitant]

REACTIONS (19)
  - Compartment syndrome [Recovered/Resolved with Sequelae]
  - Atrial fibrillation [Recovered/Resolved]
  - Sedation [Recovered/Resolved]
  - Muscle atrophy [Not Recovered/Not Resolved]
  - Abasia [Not Recovered/Not Resolved]
  - Pain in extremity [Not Recovered/Not Resolved]
  - Intraocular pressure increased [Not Recovered/Not Resolved]
  - Tremor [Not Recovered/Not Resolved]
  - Neuropathy peripheral [Not Recovered/Not Resolved]
  - Obsessive-compulsive disorder [Recovered/Resolved]
  - Dry mouth [Recovered/Resolved]
  - Dry eye [Not Recovered/Not Resolved]
  - Insomnia [Not Recovered/Not Resolved]
  - Nausea [Not Recovered/Not Resolved]
  - Glaucoma [Not Recovered/Not Resolved]
  - Dyspnoea [Not Recovered/Not Resolved]
  - Panic attack [Not Recovered/Not Resolved]
  - Heart rate increased [Not Recovered/Not Resolved]
  - Dyslipidaemia [Not Recovered/Not Resolved]
